FAERS Safety Report 16348886 (Version 1)
Quarter: 2019Q2

REPORT INFORMATION
  Report Type: Spontaneous
  Country: US (occurrence: US)
  Receive Date: 20190523
  Receipt Date: 20190523
  Transmission Date: 20190711
  Serious: Yes (Hospitalization)
  Sender: FDA-Public Use
  Company Number: US-TEVA-2019-US-1052703

PATIENT
  Age: 67 Year
  Sex: Male

DRUGS (5)
  1. DEXAMETHASONE. [Suspect]
     Active Substance: DEXAMETHASONE
     Indication: MULTIPLE SCLEROSIS
     Route: 065
  2. VITAMIN-D [Concomitant]
     Active Substance: VITAMIN D NOS
     Indication: OSTEOPOROSIS
     Route: 065
  3. VITAMIN D3 [Concomitant]
     Active Substance: CHOLECALCIFEROL
     Indication: OSTEOPOROSIS
     Dosage: FOR OVER 6 YEARS
     Route: 065
  4. COPAXONE [Concomitant]
     Active Substance: GLATIRAMER ACETATE
     Dosage: THREE TIMES PER WEEK
     Route: 065
  5. ELEMENTAL CALCIUM [Concomitant]
     Indication: OSTEOPOROSIS
     Dosage: TWO DAYS
     Route: 065

REACTIONS (1)
  - Cutaneous calcification [Recovering/Resolving]
